FAERS Safety Report 18941321 (Version 5)
Quarter: 2021Q4

REPORT INFORMATION
  Report Type: Report from Study
  Country: MY (occurrence: MY)
  Receive Date: 20210225
  Receipt Date: 20211221
  Transmission Date: 20220303
  Serious: Yes (Other)
  Sender: FDA-Public Use
  Company Number: MY-TAKEDA-2021TUS010133

PATIENT
  Sex: Female

DRUGS (5)
  1. BRENTUXIMAB VEDOTIN [Suspect]
     Active Substance: BRENTUXIMAB VEDOTIN
     Indication: Hodgkin^s disease refractory
     Dosage: 133 MILLIGRAM, Q3WEEKS
     Route: 042
     Dates: start: 20201223
  2. BRENTUXIMAB VEDOTIN [Suspect]
     Active Substance: BRENTUXIMAB VEDOTIN
     Dosage: 90 MILLIGRAM/SQ. METER
     Route: 042
  3. BRENTUXIMAB VEDOTIN [Suspect]
     Active Substance: BRENTUXIMAB VEDOTIN
     Dosage: 1.2 MILLIGRAM/KILOGRAM
     Route: 042
     Dates: start: 20210322
  4. BRENTUXIMAB VEDOTIN [Suspect]
     Active Substance: BRENTUXIMAB VEDOTIN
     Dosage: 1.4 MILLIGRAM/KILOGRAM
     Route: 042
  5. BENDAMUSTINE [Suspect]
     Active Substance: BENDAMUSTINE
     Indication: Product used for unknown indication
     Dosage: UNK
     Route: 065

REACTIONS (7)
  - Hepatitis [Recovering/Resolving]
  - Nausea [Recovering/Resolving]
  - Alanine aminotransferase increased [Recovering/Resolving]
  - Aspartate aminotransferase increased [Recovering/Resolving]
  - Weight decreased [Recovering/Resolving]
  - Pain [Recovering/Resolving]
  - Drug interaction [Unknown]
